FAERS Safety Report 5936574-9 (Version None)
Quarter: 2008Q4

REPORT INFORMATION
  Report Type: 
  Country: None (occurrence: None)
  Receive Date: 20081030
  Receipt Date: 20081023
  Transmission Date: 20090506
  Serious: Yes (Hospitalization)
  Sender: FDA-Public Use
  Company Number: FR-B.I. PHARMACEUTICALS,INC./RIDGEFIELD-2008-FF-00778FF

PATIENT
  Age: 73 Year
  Sex: Male

DRUGS (10)
  1. SPIRIVA [Suspect]
     Route: 055
  2. IBUPROFENE [Concomitant]
     Route: 048
     Dates: end: 20080701
  3. PLAVIX [Concomitant]
     Dosage: 75MG
     Route: 048
  4. OGAST [Concomitant]
     Route: 048
  5. PRAVADUAL [Concomitant]
     Route: 048
  6. ZOXAN [Concomitant]
     Route: 048
  7. DIAMICRON [Concomitant]
     Route: 048
  8. DIOSMINE [Concomitant]
     Route: 048
  9. TANAKAN [Concomitant]
     Route: 048
  10. CIALIS [Concomitant]
     Dosage: PRN
     Route: 048

REACTIONS (1)
  - PULMONARY FIBROSIS [None]
